FAERS Safety Report 8821011 (Version 2)
Quarter: 2014Q3

REPORT INFORMATION
  Report Type: Report from Study
  Country: US (occurrence: US)
  Receive Date: 20121002
  Receipt Date: 20140822
  Transmission Date: 20150326
  Serious: Yes (Other)
  Sender: FDA-Public Use
  Company Number: US-ROCHE-1135853

PATIENT
  Sex: Male

DRUGS (2)
  1. RITUXAN [Suspect]
     Active Substance: RITUXIMAB
     Indication: THROMBOCYTOPENIA
     Route: 042
  2. RITUXAN [Suspect]
     Active Substance: RITUXIMAB
     Indication: OFF LABEL USE

REACTIONS (9)
  - Coronary artery disease [Unknown]
  - Neuropathy peripheral [Unknown]
  - Depression [Unknown]
  - Pain [Unknown]
  - Neutropenia [Unknown]
  - Deep vein thrombosis [Unknown]
  - Weight decreased [Unknown]
  - Drug-induced liver injury [Unknown]
  - Herpes virus infection [Unknown]
